FAERS Safety Report 6702958-4 (Version None)
Quarter: 2010Q2

REPORT INFORMATION
  Report Type: 
  Country: None (occurrence: None)
  Receive Date: 20100429
  Receipt Date: 20100420
  Transmission Date: 20101027
  Serious: Yes (Hospitalization, Other)
  Sender: FDA-Public Use
  Company Number: US-AMGEN-QUU402250

PATIENT
  Sex: Female
  Weight: 107 kg

DRUGS (30)
  1. EPOGEN [Suspect]
     Indication: RENAL FAILURE CHRONIC
     Dates: start: 20030121, end: 20100326
  2. ZEMPLAR [Concomitant]
  3. TYLENOL W/ CODEINE NO. 3 [Concomitant]
     Route: 048
     Dates: start: 20100311
  4. COZAAR [Concomitant]
  5. ZAROXOLYN [Concomitant]
     Dates: start: 20090519
  6. ERGOCALCIFEROL [Concomitant]
     Route: 048
     Dates: start: 20090123
  7. REGLAN [Concomitant]
     Route: 048
     Dates: start: 20080729
  8. UNSPECIFIED MEDICATION [Concomitant]
  9. FLEXERIL [Concomitant]
     Route: 048
     Dates: start: 20070301
  10. SPIRONOLACTONE [Concomitant]
  11. CLONIDINE [Concomitant]
     Route: 048
     Dates: start: 20070301
  12. VITAMIN E [Concomitant]
     Route: 048
     Dates: start: 20070301
  13. ZINC [Concomitant]
     Route: 048
     Dates: start: 20070202
  14. TOPROL-XL [Concomitant]
     Route: 048
     Dates: start: 20060505
  15. TOPROL-XL [Concomitant]
     Route: 048
     Dates: start: 20051120
  16. MAGNESIUM OXIDE [Concomitant]
     Route: 048
     Dates: start: 20041111
  17. THIAMINE [Concomitant]
     Route: 048
     Dates: start: 20030215
  18. VITAMIN C [Concomitant]
     Route: 048
     Dates: start: 20030201
  19. DULCOLAX [Concomitant]
     Route: 048
     Dates: start: 20070211
  20. COLACE [Concomitant]
  21. HYDROCODONE BITARTRATE [Concomitant]
  22. TRAVATAN [Concomitant]
     Route: 047
     Dates: start: 20080517
  23. DIATX [Concomitant]
     Route: 048
     Dates: start: 20070302
  24. ZINC [Concomitant]
  25. ANUSOL [Concomitant]
     Route: 054
     Dates: start: 20081113
  26. LISINOPRIL [Concomitant]
     Route: 048
     Dates: start: 20100407
  27. OMEPRAZOLE [Concomitant]
     Route: 048
     Dates: start: 20100226
  28. CLOTRIMAZOLE [Concomitant]
     Route: 061
     Dates: start: 20090806
  29. PROTONIX [Concomitant]
     Dates: start: 20090101
  30. RENAGEL [Concomitant]
     Dates: start: 20090101

REACTIONS (15)
  - ABDOMINAL PAIN [None]
  - APLASIA PURE RED CELL [None]
  - CHEST PAIN [None]
  - ELECTROCARDIOGRAM QT PROLONGED [None]
  - HAEMATOMA [None]
  - HYPERKALAEMIA [None]
  - HYPOKALAEMIA [None]
  - HYPOMAGNESAEMIA [None]
  - LARYNGITIS [None]
  - LYMPHADENOPATHY MEDIASTINAL [None]
  - MYELODYSPLASTIC SYNDROME [None]
  - PROCEDURAL PAIN [None]
  - THERAPEUTIC RESPONSE DECREASED [None]
  - VASCULAR GRAFT THROMBOSIS [None]
  - VENTRICULAR EXTRASYSTOLES [None]
